FAERS Safety Report 25154184 (Version 2)
Quarter: 2025Q2

REPORT INFORMATION
  Report Type: Spontaneous
  Country: US (occurrence: US)
  Receive Date: 20250403
  Receipt Date: 20250529
  Transmission Date: 20250717
  Serious: Yes (Hospitalization)
  Sender: CHIESI
  Company Number: US-CHIESI-2025CHF02077

PATIENT
  Age: 21 Year
  Sex: Female
  Weight: 52 kg

DRUGS (5)
  1. FERRIPROX [Suspect]
     Active Substance: DEFERIPRONE
     Indication: Thalassaemia beta
     Dosage: 2000 MILLIGRAM, BID
     Route: 048
     Dates: start: 20221102
  2. ELIQUIS [Concomitant]
     Active Substance: APIXABAN
     Indication: Product used for unknown indication
  3. MELATONIN [Concomitant]
     Active Substance: MELATONIN
     Indication: Product used for unknown indication
  4. PENICILLAMINE [Concomitant]
     Active Substance: PENICILLAMINE
     Indication: Product used for unknown indication
  5. VITAMIN D [Concomitant]
     Active Substance: VITAMIN D NOS
     Indication: Product used for unknown indication

REACTIONS (8)
  - Thrombosis [Recovering/Resolving]
  - Viral infection [Recovering/Resolving]
  - Gastritis [Not Recovered/Not Resolved]
  - White blood cell count increased [Recovering/Resolving]
  - Pancreatitis [Recovering/Resolving]
  - Weight decreased [Unknown]
  - Fatigue [Recovered/Resolved]
  - Dizziness [Recovered/Resolved]

NARRATIVE: CASE EVENT DATE: 20250520
